FAERS Safety Report 19138301 (Version 2)
Quarter: 2021Q3

REPORT INFORMATION
  Report Type: Spontaneous
  Country: PK (occurrence: PK)
  Receive Date: 20210414
  Receipt Date: 20210903
  Transmission Date: 20211014
  Serious: Yes (Other)
  Sender: FDA-Public Use
  Company Number: PK-VALIDUS PHARMACEUTICALS LLC-PK-2021VAL001119

PATIENT

DRUGS (2)
  1. NOSPA                              /00359202/ [Suspect]
     Active Substance: DROTAVERINE HYDROCHLORIDE
     Indication: PRODUCT USED FOR UNKNOWN INDICATION
     Dosage: UNK
     Route: 065
  2. CLAFORAN [Suspect]
     Active Substance: CEFOTAXIME SODIUM
     Indication: PRODUCT USED FOR UNKNOWN INDICATION
     Dosage: UNK
     Route: 065

REACTIONS (2)
  - Heart rate increased [Unknown]
  - Postoperative wound infection [Unknown]
